FAERS Safety Report 10067281 (Version 1)
Quarter: 2014Q2

REPORT INFORMATION
  Report Type: Spontaneous
  Country: US (occurrence: None)
  Receive Date: 20140408
  Receipt Date: 20140408
  Transmission Date: 20141212
  Serious: Yes (Other)
  Sender: FDA-Public Use
  Company Number: None

PATIENT
  Age: 38 Year
  Sex: Female
  Weight: 81.65 kg

DRUGS (2)
  1. VYANSE [Suspect]
     Indication: ATTENTION DEFICIT/HYPERACTIVITY DISORDER
     Dosage: 1 PILL ONCE DAILY TAKEN BY MOUTH
     Route: 048
     Dates: start: 20140401, end: 20140407
  2. VYANSE [Suspect]
     Indication: SOMNOLENCE
     Dosage: 1 PILL ONCE DAILY TAKEN BY MOUTH
     Route: 048
     Dates: start: 20140401, end: 20140407

REACTIONS (8)
  - Headache [None]
  - Inadequate analgesia [None]
  - Vision blurred [None]
  - Drug effect decreased [None]
  - Product physical issue [None]
  - Product quality issue [None]
  - Suspected counterfeit product [None]
  - Product tampering [None]
